FAERS Safety Report 19906705 (Version 1)
Quarter: 2021Q4

REPORT INFORMATION
  Report Type: Spontaneous
  Country: FR (occurrence: FR)
  Receive Date: 20211001
  Receipt Date: 20211001
  Transmission Date: 20220303
  Serious: Yes (Hospitalization)
  Sender: FDA-Public Use
  Company Number: FR-PFIZER INC-2020421594

PATIENT
  Age: 87 Year
  Sex: Female
  Weight: 86 kg

DRUGS (13)
  1. METHOTREXATE SODIUM [Suspect]
     Active Substance: METHOTREXATE SODIUM
     Indication: Rheumatoid arthritis
     Dosage: PLUG ERROR WITH PLUG: 26-SEP, 27-SEP, 29-SEP AND 02-OCT (10MG 1 TABLET PER WEEK)
     Route: 048
     Dates: start: 202008, end: 20201002
  2. SPIRONOLACTONE ALTIZIDE PFIZER [Concomitant]
     Dosage: SPIRONOLACTONE 25 PLUS ALTIZIDE 5 (HALF PER DAY)
     Route: 065
  3. ASPIRIN [Concomitant]
     Active Substance: ASPIRIN
     Dosage: UNK
     Route: 065
  4. HYDROXYZINE [Concomitant]
     Active Substance: HYDROXYZINE HYDROCHLORIDE
     Dosage: STRENGTH: 25
     Route: 065
  5. ATORVASTATIN [Concomitant]
     Active Substance: ATORVASTATIN
     Dosage: STRENGTH: 10
     Route: 065
  6. INDOMETHACIN [Concomitant]
     Active Substance: INDOMETHACIN
     Dosage: STRENGTH: 75. 1/DAY EVERY TWO DAYS
     Route: 065
  7. DOLIPRANE [Concomitant]
     Active Substance: ACETAMINOPHEN
     Dosage: 1 G (1SEPARATE DOSAGE IN 8 HOURS) (1G THREE TIMES PER DAY)
     Route: 065
  8. CALCIUM CARBONATE\CHOLECALCIFEROL [Concomitant]
     Active Substance: CALCIUM CARBONATE\CHOLECALCIFEROL
     Dosage: UNK
     Route: 065
  9. FLUOXETINE [Concomitant]
     Active Substance: FLUOXETINE HYDROCHLORIDE
     Dosage: STRENGTH: 20
     Route: 065
  10. DEXTROSE [Concomitant]
     Active Substance: DEXTROSE
     Dosage: STRENGTH: 5%. 1L OVER 8 HOURS
     Route: 065
  11. PANTOPRAZOLE [Concomitant]
     Active Substance: PANTOPRAZOLE
     Dosage: STRENGTH: 40
     Route: 065
  12. PREDNISONE [Concomitant]
     Active Substance: PREDNISONE
     Dosage: STRENGTH: 5
     Route: 065
  13. VISKEN [Concomitant]
     Active Substance: PINDOLOL
     Dosage: STRENGTH: 5 (TWO TABLETS PER DAY)
     Route: 065

REACTIONS (13)
  - Medication error [Recovered/Resolved]
  - Product administration error [Recovered/Resolved]
  - Accidental overdose [Recovered/Resolved]
  - Renal impairment [Recovering/Resolving]
  - Pancytopenia [Recovering/Resolving]
  - Inappropriate schedule of product administration [Recovered/Resolved]
  - Cardiac failure [Unknown]
  - Febrile neutropenia [Recovering/Resolving]
  - Pneumocystis jirovecii pneumonia [Unknown]
  - Myelosuppression [Unknown]
  - General physical condition abnormal [Unknown]
  - Abdominal pain [Unknown]
  - Ovarian cyst [Unknown]

NARRATIVE: CASE EVENT DATE: 20200101
